FAERS Safety Report 6056117-1 (Version None)
Quarter: 2009Q1

REPORT INFORMATION
  Report Type: 
  Country: None (occurrence: None)
  Receive Date: 20090128
  Receipt Date: 20090116
  Transmission Date: 20090719
  Serious: No
  Sender: FDA-Public Use
  Company Number: JP-ELI_LILLY_AND_COMPANY-JP200901004196

PATIENT
  Age: 40 Year
  Sex: Male

DRUGS (6)
  1. OLANZAPINE [Suspect]
     Dosage: 10 MG, DAILY (1/D)
     Route: 048
  2. LODOPIN [Concomitant]
  3. IMPROMEN /00568801/ [Concomitant]
  4. FLUDECASIN [Concomitant]
  5. CHLORPROMAZINE HCL [Concomitant]
  6. BLADDERON [Concomitant]

REACTIONS (2)
  - HAEMATEMESIS [None]
  - RHABDOMYOLYSIS [None]
